FAERS Safety Report 21616437 (Version 1)
Quarter: 2022Q4

REPORT INFORMATION
  Report Type: Report from Study
  Country: US (occurrence: US)
  Receive Date: 20221118
  Receipt Date: 20221118
  Transmission Date: 20230113
  Serious: Yes (Death)
  Sender: FDA-Public Use
  Company Number: US-002147023-NVSC2022US260109

PATIENT
  Sex: Female

DRUGS (1)
  1. SCEMBLIX [Suspect]
     Active Substance: ASCIMINIB HYDROCHLORIDE
     Indication: Philadelphia positive chronic myeloid leukaemia
     Dosage: 80 MG, QD
     Route: 048

REACTIONS (6)
  - Death [Fatal]
  - Product use complaint [Unknown]
  - Oral mucosal exfoliation [Unknown]
  - Oral mucosal discolouration [Unknown]
  - Confusional state [Unknown]
  - Asthenia [Unknown]
